FAERS Safety Report 21921015 (Version 1)
Quarter: 2023Q1

REPORT INFORMATION
  Report Type: Spontaneous
  Country: US (occurrence: US)
  Receive Date: 20230127
  Receipt Date: 20230127
  Transmission Date: 20230417
  Serious: No
  Sender: FDA-Public Use
  Company Number: US-BRISTOL-MYERS SQUIBB COMPANY-2023-012471

PATIENT
  Age: 58 Year
  Sex: Male

DRUGS (1)
  1. THALOMID [Suspect]
     Active Substance: THALIDOMIDE
     Indication: Gastrointestinal angiodysplasia
     Route: 048
     Dates: start: 20221122

REACTIONS (1)
  - Off label use [Unknown]
